FAERS Safety Report 6436153-3 (Version None)
Quarter: 2009Q4

REPORT INFORMATION
  Report Type: 
  Country: None (occurrence: None)
  Receive Date: 20091111
  Receipt Date: 20091103
  Transmission Date: 20100525
  Serious: Yes (Other)
  Sender: FDA-Public Use
  Company Number: US-ROCHE-610003

PATIENT
  Sex: Male

DRUGS (5)
  1. PEGASYS [Suspect]
     Indication: HEPATITIS C
     Dosage: FORM: PRE-FILLED SYRINGE
     Route: 065
     Dates: start: 20080917
  2. RIBASPHERE [Suspect]
     Indication: HEPATITIS C
     Route: 065
     Dates: start: 20080917
  3. BUSPAR [Suspect]
     Indication: DRUG USE FOR UNKNOWN INDICATION
     Route: 065
  4. LOVASTATIN [Concomitant]
  5. METHADONE HCL [Concomitant]

REACTIONS (24)
  - ANGINA PECTORIS [None]
  - ANXIETY [None]
  - BALANCE DISORDER [None]
  - BLOOD ELECTROLYTES DECREASED [None]
  - DECREASED APPETITE [None]
  - DEHYDRATION [None]
  - DEPRESSION [None]
  - DISTURBANCE IN ATTENTION [None]
  - DIZZINESS [None]
  - DYSARTHRIA [None]
  - FALL [None]
  - HEADACHE [None]
  - HEPATITIS C RNA INCREASED [None]
  - HYPERAMMONAEMIA [None]
  - INJURY [None]
  - LETHARGY [None]
  - MOOD SWINGS [None]
  - NASAL CONGESTION [None]
  - PLATELET COUNT DECREASED [None]
  - RASH [None]
  - SOMNOLENCE [None]
  - VISION BLURRED [None]
  - WEIGHT DECREASED [None]
  - WHITE BLOOD CELL COUNT DECREASED [None]
